FAERS Safety Report 21099965 (Version 1)
Quarter: 2022Q3

REPORT INFORMATION
  Report Type: Spontaneous
  Country: US (occurrence: US)
  Receive Date: 20220719
  Receipt Date: 20220719
  Transmission Date: 20221027
  Serious: Yes (Other)
  Sender: FDA-Public Use
  Company Number: US-ORG100016242-2022001828

PATIENT
  Sex: Female

DRUGS (2)
  1. EXPAREL [Suspect]
     Active Substance: BUPIVACAINE
     Indication: Postoperative analgesia
     Route: 050
     Dates: start: 20220712, end: 20220712
  2. BUPIVACAINE HYDROCHLORIDE [Suspect]
     Active Substance: BUPIVACAINE HYDROCHLORIDE
     Indication: Postoperative analgesia
     Route: 050
     Dates: start: 20220712, end: 20220712

REACTIONS (3)
  - Slow speech [Unknown]
  - Tremor [Unknown]
  - Chest pain [Unknown]

NARRATIVE: CASE EVENT DATE: 20220712
